FAERS Safety Report 10755787 (Version 2)
Quarter: 2015Q1

REPORT INFORMATION
  Report Type: Spontaneous
  Country: JP (occurrence: JP)
  Receive Date: 20150202
  Receipt Date: 20150211
  Transmission Date: 20150721
  Serious: Yes (Death)
  Sender: FDA-Public Use
  Company Number: JP-SA-2015SA009122

PATIENT
  Sex: Female
  Weight: 43.2 kg

DRUGS (7)
  1. TAXOTERE [Suspect]
     Active Substance: DOCETAXEL
     Indication: UTERINE CANCER
     Route: 065
     Dates: start: 20150109
  2. GRANISETRON [Concomitant]
     Active Substance: GRANISETRON
     Dosage: (EVERY ADMINISTRATION OF COMPANY SUSPECTED DRUG)
  3. LASIX [Concomitant]
     Active Substance: FUROSEMIDE
     Route: 048
     Dates: start: 20140923, end: 20150122
  4. MAGLAX [Concomitant]
     Active Substance: MAGNESIUM OXIDE
     Route: 048
     Dates: start: 20140222, end: 20150122
  5. DECADRON [Concomitant]
     Active Substance: DEXAMETHASONE
     Route: 048
     Dates: start: 20150114
  6. TAXOTERE [Suspect]
     Active Substance: DOCETAXEL
     Indication: UTERINE CANCER
     Dosage: STRENGTH- 80 MG
     Route: 042
     Dates: start: 20141210
  7. ADALAT CC [Concomitant]
     Active Substance: NIFEDIPINE
     Route: 048
     Dates: start: 20131030, end: 20141205

REACTIONS (6)
  - Decreased appetite [Fatal]
  - Ascites [Fatal]
  - Hypoproteinaemia [Fatal]
  - Dehydration [Fatal]
  - Electrolyte imbalance [Fatal]
  - Malaise [Fatal]

NARRATIVE: CASE EVENT DATE: 201501
